FAERS Safety Report 4437561-2 (Version None)
Quarter: 2004Q3

REPORT INFORMATION
  Report Type: 
  Country: None (occurrence: None)
  Receive Date: 20040830
  Receipt Date: 20040830
  Transmission Date: 20050211
  Serious: No
  Sender: FDA-Public Use
  Company Number: None

PATIENT
  Sex: Male
  Weight: 78 kg

DRUGS (5)
  1. ZOCOR [Suspect]
     Indication: HYPERLIPIDAEMIA
     Dosage: 80 MG QHS ORAL
     Route: 048
     Dates: start: 20040326, end: 20040719
  2. LORAZEPAM [Concomitant]
  3. LORTAB [Concomitant]
  4. ATENOLOL [Concomitant]
  5. RABEPRAZOLE SODIUM [Concomitant]

REACTIONS (2)
  - CONSTIPATION [None]
  - LIVER FUNCTION TEST ABNORMAL [None]
